FAERS Safety Report 12666350 (Version 1)
Quarter: 2016Q3

REPORT INFORMATION
  Report Type: Spontaneous
  Country: US (occurrence: US)
  Receive Date: 20160818
  Receipt Date: 20160818
  Transmission Date: 20161109
  Serious: Yes (Hospitalization, Other)
  Sender: FDA-Public Use
  Company Number: US-TEVA-685499USA

PATIENT
  Age: 73 Year
  Sex: Female

DRUGS (7)
  1. DAUNORUBICIN [Suspect]
     Active Substance: DAUNORUBICIN
     Indication: ACUTE MYELOID LEUKAEMIA
     Dosage: Q 24 DAYS 1-3
     Route: 065
     Dates: start: 20160312
  2. AMLODIPINE [Concomitant]
     Active Substance: AMLODIPINE BESYLATE
  3. PLAVIX [Concomitant]
     Active Substance: CLOPIDOGREL BISULFATE
  4. CYTARABINE. [Suspect]
     Active Substance: CYTARABINE
     Indication: ACUTE MYELOID LEUKAEMIA
     Dosage: Q 24 X7
     Route: 065
     Dates: start: 20160312
  5. PREDNISONE. [Concomitant]
     Active Substance: PREDNISONE
  6. ALPRAZOLAM. [Concomitant]
     Active Substance: ALPRAZOLAM
  7. ASPIRIN. [Concomitant]
     Active Substance: ASPIRIN

REACTIONS (7)
  - General physical health deterioration [Unknown]
  - Atrial fibrillation [Unknown]
  - Hypotension [Unknown]
  - Cardiac failure congestive [Unknown]
  - Febrile neutropenia [Unknown]
  - Ejection fraction decreased [Unknown]
  - Pancytopenia [Recovering/Resolving]

NARRATIVE: CASE EVENT DATE: 2016
